FAERS Safety Report 17684788 (Version 1)
Quarter: 2020Q2

REPORT INFORMATION
  Report Type: Spontaneous
  Country: US (occurrence: US)
  Receive Date: 20200419
  Receipt Date: 20200419
  Transmission Date: 20200714
  Serious: No
  Sender: FDA-Public Use
  Company Number: None

PATIENT
  Age: 47 Year
  Sex: Male
  Weight: 69.75 kg

DRUGS (3)
  1. MVI ADULT GUMMIES [Concomitant]
  2. PROBIOTIC GUMMIES [Concomitant]
  3. CREST BAKING SODA AND PEROXIDE WHITENING WITH TARTAR PROTECTION [Suspect]
     Active Substance: SODIUM FLUORIDE
     Indication: DENTAL CARE

REACTIONS (4)
  - Lip pain [None]
  - Discomfort [None]
  - Skin exfoliation [None]
  - Oral discomfort [None]

NARRATIVE: CASE EVENT DATE: 20200418
